FAERS Safety Report 4271555-5 (Version None)
Quarter: 2004Q1

REPORT INFORMATION
  Report Type: 
  Country: None (occurrence: None)
  Receive Date: 20040113
  Receipt Date: 20031231
  Transmission Date: 20041129
  Serious: Yes (Disabling, Other)
  Sender: FDA-Public Use
  Company Number: HQWYE022605JAN04

PATIENT
  Sex: Female

DRUGS (3)
  1. EFFEXOR XR [Suspect]
     Indication: MIGRAINE PROPHYLAXIS
     Dosage: ORAL; 75 MG, ORAL; 37.5 MG, ORAL
     Route: 048
     Dates: start: 20031001, end: 20030101
  2. EFFEXOR XR [Suspect]
     Indication: MIGRAINE PROPHYLAXIS
     Dosage: ORAL; 75 MG, ORAL; 37.5 MG, ORAL
     Route: 048
     Dates: start: 20030101, end: 20031201
  3. EFFEXOR XR [Suspect]
     Indication: MIGRAINE PROPHYLAXIS
     Dosage: ORAL; 75 MG, ORAL; 37.5 MG, ORAL
     Route: 048
     Dates: start: 20031201, end: 20031201

REACTIONS (9)
  - ARTHRALGIA [None]
  - DIFFICULTY IN WALKING [None]
  - DIZZINESS [None]
  - FATIGUE [None]
  - MOBILITY DECREASED [None]
  - MUSCULOSKELETAL STIFFNESS [None]
  - OEDEMA PERIPHERAL [None]
  - PARAESTHESIA [None]
  - VOMITING [None]
